FAERS Safety Report 10530567 (Version 1)
Quarter: 2014Q4

REPORT INFORMATION
  Report Type: Spontaneous
  Country: US (occurrence: None)
  Receive Date: 20141020
  Receipt Date: 20141020
  Transmission Date: 20150528
  Serious: No
  Sender: FDA-Public Use
  Company Number: None

PATIENT
  Age: 42 Year
  Sex: Male
  Weight: 166.92 kg

DRUGS (1)
  1. LORTAB [Suspect]
     Active Substance: ACETAMINOPHEN\HYDROCODONE BITARTRATE
     Indication: PAIN
     Dosage: 120; FOUR TIMES DAILY
     Route: 048

REACTIONS (3)
  - Palpitations [None]
  - Product quality issue [None]
  - Product colour issue [None]

NARRATIVE: CASE EVENT DATE: 20141010
